FAERS Safety Report 7489529-X (Version None)
Quarter: 2011Q2

REPORT INFORMATION
  Report Type: 
  Country: None (occurrence: None)
  Receive Date: 20110519
  Receipt Date: 20110506
  Transmission Date: 20111010
  Serious: Yes (Other)
  Sender: FDA-Public Use
  Company Number: AR-AMGEN-ARGSP2011019782

PATIENT
  Sex: Female

DRUGS (5)
  1. CALCIUM CARBONATE [Concomitant]
     Dosage: UNK
     Route: 048
     Dates: start: 20060101
  2. ENBREL [Suspect]
     Indication: RHEUMATOID ARTHRITIS
     Dosage: 25 MG, 2X/WEEK
     Route: 058
     Dates: start: 20060101
  3. PREDNISONE [Concomitant]
     Dosage: UNK
     Route: 048
     Dates: start: 20060101
  4. LOTRIAL                            /00574901/ [Concomitant]
     Dosage: UNK
     Route: 048
     Dates: start: 20060101
  5. OMEPRAZOLE [Concomitant]
     Dosage: UNK
     Route: 048
     Dates: start: 20060101

REACTIONS (3)
  - INTERVERTEBRAL DISC PROTRUSION [None]
  - WEIGHT DECREASED [None]
  - CHOLELITHIASIS [None]
